FAERS Safety Report 8921129 (Version 3)
Quarter: 2012Q4

REPORT INFORMATION
  Report Type: Report from Study
  Country: JP (occurrence: JP)
  Receive Date: 20121121
  Receipt Date: 20121213
  Transmission Date: 20130627
  Serious: Yes (Other)
  Sender: FDA-Public Use
  Company Number: JP-OTSUKA-JP-2012-16276

PATIENT
  Age: 69 Year
  Sex: Male

DRUGS (9)
  1. SAMSCA [Suspect]
     Indication: FLUID RETENTION
     Dosage: 15 Mg milligram(s), qam
     Route: 048
     Dates: start: 20120802, end: 20120810
  2. SAMSCA [Suspect]
     Dosage: 7.5 Mg milligram(s), qam
     Route: 048
     Dates: start: 20120811, end: 20120815
  3. SIGMART [Concomitant]
     Indication: CARDIAC FAILURE
     Dosage: 15 Mg milligram(s), daily dose
     Route: 048
  4. TAKEPRON [Concomitant]
     Dosage: 30 Mg milligram(s), daily dose
     Route: 048
  5. LASIX [Concomitant]
     Indication: CARDIAC FAILURE
     Dosage: 80 Mg milligram(s), daily dose
     Route: 048
  6. DIART [Concomitant]
     Indication: CARDIAC FAILURE
     Dosage: 60 Mg milligram(s), daily dose
     Route: 048
  7. SALOBEL [Concomitant]
     Dosage: 200 Mg milligram(s), daily dose
     Route: 048
  8. ALDACTONE A [Concomitant]
     Indication: CARDIAC FAILURE
     Dosage: 75 Mg milligram(s), daily dose
     Route: 048
  9. HUMULIN R [Concomitant]
     Indication: DIABETES MELLITUS
     Dosage: 30 Iu, daily dose
     Route: 030

REACTIONS (10)
  - Renal failure [Not Recovered/Not Resolved]
  - Blood glucose increased [Unknown]
  - Dehydration [Unknown]
  - Infection [Not Recovered/Not Resolved]
  - Cardiac failure [Unknown]
  - Pleural effusion [None]
  - Wound infection [None]
  - Multiple-drug resistance [None]
  - Dysphagia [None]
  - Diabetes mellitus inadequate control [None]
